FAERS Safety Report 5371875-7 (Version None)
Quarter: 2007Q2

REPORT INFORMATION
  Report Type: 
  Country: None (occurrence: None)
  Receive Date: 20070627
  Receipt Date: 20070618
  Transmission Date: 20071010
  Serious: Yes (Other)
  Sender: FDA-Public Use
  Company Number: NL-JNJFOC-20070604128

PATIENT
  Sex: Male

DRUGS (1)
  1. TRISPORAL [Suspect]
     Indication: ONYCHOMYCOSIS
     Route: 048

REACTIONS (2)
  - PALPITATIONS [None]
  - PYREXIA [None]
